FAERS Safety Report 8815001 (Version 1)
Quarter: 2012Q4

REPORT INFORMATION
  Report Type: Report from Study
  Country: US (occurrence: US)
  Receive Date: 20120928
  Receipt Date: 20120928
  Transmission Date: 20130627
  Serious: Yes (Hospitalization, Other)
  Sender: FDA-Public Use
  Company Number: US-PFIZER INC-2012229872

PATIENT
  Age: 71 Year
  Sex: Female

DRUGS (2)
  1. TORISEL [Suspect]
     Indication: NEOPLASM
     Dosage: 20 mg, total  over 30 to 60 minutes on days 2 and 9
     Route: 042
     Dates: start: 20120625
  2. IXEMPRA [Suspect]
     Indication: NEOPLASM
     Dosage: 47 mg, total over 3 hours on day 1
     Route: 042
     Dates: start: 20120625

REACTIONS (5)
  - Hypotension [Recovering/Resolving]
  - Diarrhoea [Recovering/Resolving]
  - Fatigue [Recovering/Resolving]
  - Stomatitis [Recovering/Resolving]
  - Dehydration [Recovering/Resolving]
